FAERS Safety Report 4443519-X (Version None)
Quarter: 2004Q3

REPORT INFORMATION
  Report Type: 
  Country: None (occurrence: None)
  Receive Date: 20040901
  Receipt Date: 20040823
  Transmission Date: 20050211
  Serious: No
  Sender: FDA-Public Use
  Company Number: 2004UW17828

PATIENT
  Age: 36 Year
  Sex: Male

DRUGS (8)
  1. NEXIUM [Suspect]
     Indication: PROPHYLAXIS AGAINST GASTROINTESTINAL ULCER
     Dosage: 40 MG QD PO
     Route: 048
     Dates: end: 20040706
  2. TEMODAL [Suspect]
     Indication: OLIGODENDROGLIOMA
     Dosage: 400 MG QD PO
     Route: 048
     Dates: start: 20040628, end: 20040702
  3. TEGRETOL [Suspect]
     Indication: CONVULSION
     Dosage: 1200 MG QD PO
     Route: 048
  4. CELEBREX [Suspect]
     Indication: PAIN
     Dosage: 100 MG QD PO
     Route: 048
     Dates: start: 20040629, end: 20040705
  5. SINTROM [Suspect]
     Indication: PULMONARY EMBOLISM
     Dosage: 5-6 MG QD
     Dates: start: 20040701
  6. FRAXIPARINE [Suspect]
     Indication: THROMBOSIS PROPHYLAXIS
     Dosage: 0.16 ML QD SQ
     Route: 058
  7. TRAMADAL [Concomitant]
  8. CALCIUM AND VITAMIN D [Concomitant]

REACTIONS (4)
  - DRUG INEFFECTIVE [None]
  - DRUG INTERACTION [None]
  - HEPATOCELLULAR DAMAGE [None]
  - PULMONARY EMBOLISM [None]
